FAERS Safety Report 10673573 (Version 1)
Quarter: 2014Q4

REPORT INFORMATION
  Report Type: Spontaneous
  Country: ES (occurrence: None)
  Receive Date: 20141222
  Receipt Date: 20141222
  Transmission Date: 20150529
  Serious: Yes (Death, Hospitalization)
  Sender: FDA-Public Use
  Company Number: NSR_01729_2014

PATIENT
  Age: 71 Year
  Sex: Female

DRUGS (10)
  1. ALLOPURINOL (ALLOPURINOL) [Suspect]
     Active Substance: ALLOPURINOL
     Indication: HYPERURICAEMIA
  2. DOXAZOSIN [Concomitant]
     Active Substance: DOXAZOSIN\DOXAZOSIN MESYLATE
  3. BISOPROLOL [Concomitant]
     Active Substance: BISOPROLOL
  4. ATORVASTATIN [Concomitant]
     Active Substance: ATORVASTATIN
  5. INSULIN [Concomitant]
     Active Substance: INSULIN NOS
  6. FUROSEMIDE. [Concomitant]
     Active Substance: FUROSEMIDE
  7. ESOMEPRAZOLE [Concomitant]
     Active Substance: ESOMEPRAZOLE
  8. CALCIUM POLYSTYRENE SULFONATE [Concomitant]
     Active Substance: CALCIUM POLYSTYRENE SULFONATE
  9. PARICALCITOL. [Concomitant]
     Active Substance: PARICALCITOL
  10. MANIDIPINE [Concomitant]
     Active Substance: MANIDIPINE

REACTIONS (11)
  - Toxic epidermal necrolysis [None]
  - Renal failure [None]
  - Shock [None]
  - Multi-organ failure [None]
  - Dialysis [None]
  - Sepsis [None]
  - Procalcitonin [None]
  - Polymerase chain reaction [None]
  - Drug hypersensitivity [None]
  - Pancytopenia [None]
  - Respiratory failure [None]
